FAERS Safety Report 23758494 (Version 2)
Quarter: 2024Q2

REPORT INFORMATION
  Report Type: Spontaneous
  Country: BE (occurrence: BE)
  Receive Date: 20240418
  Receipt Date: 20240503
  Transmission Date: 20240716
  Serious: Yes (Other)
  Sender: FDA-Public Use
  Company Number: BE-TEVA-VS-3183877

PATIENT
  Age: 75 Year
  Sex: Male

DRUGS (5)
  1. INDAPAMIDE\PERINDOPRIL [Suspect]
     Active Substance: INDAPAMIDE\PERINDOPRIL
     Indication: Essential hypertension
     Route: 065
  2. PANCREATIN [Suspect]
     Active Substance: PANCRELIPASE
     Indication: Pancreatic enzyme replacement therapy
     Dosage: TIME INTERVAL: 0.33333333 DAYS: THREE TIMES PER DAY
     Route: 065
  3. VITAMIN C [Suspect]
     Active Substance: ASCORBIC ACID
     Indication: Vitamin supplementation
     Route: 065
  4. CHOLECALCIFEROL [Concomitant]
     Active Substance: CHOLECALCIFEROL
     Indication: Vitamin supplementation
     Dosage: 25.000 U
     Route: 065
  5. PANTOPRAZOLE [Suspect]
     Active Substance: PANTOPRAZOLE
     Indication: Product used for unknown indication
     Route: 065

REACTIONS (6)
  - Hyperoxaluria [Unknown]
  - Acute kidney injury [Recovering/Resolving]
  - Crystal nephropathy [Unknown]
  - Steatorrhoea [Unknown]
  - Hypovolaemia [Unknown]
  - Treatment noncompliance [Unknown]
